FAERS Safety Report 4860513-5 (Version None)
Quarter: 2005Q4

REPORT INFORMATION
  Report Type: 
  Country: None (occurrence: None)
  Receive Date: 20051216
  Receipt Date: 20051202
  Transmission Date: 20060501
  Serious: Yes (Other)
  Sender: FDA-Public Use
  Company Number: US200512000539

PATIENT
  Age: 44 Year
  Sex: Male
  Weight: 112.9 kg

DRUGS (12)
  1. CYMBALTA [Suspect]
     Indication: DEPRESSION
     Dosage: SEE IMAGE
     Dates: start: 20051101, end: 20051101
  2. CYMBALTA [Suspect]
     Indication: DEPRESSION
     Dosage: SEE IMAGE
     Dates: start: 20051101
  3. CYMBALTA [Suspect]
  4. GABITRIL /SCH/ (TIAGABINE HYDROCHLORIDE) [Concomitant]
  5. POTASSIUM CHLORIDE [Concomitant]
  6. LASIX [Concomitant]
  7. ZOCOR [Concomitant]
  8. NORCO [Concomitant]
  9. XANAX /USA/ (ALPRAZOLAM) [Concomitant]
  10. PRINZIDE [Concomitant]
  11. NEURONTIN [Concomitant]
  12. KLONOPIN [Concomitant]

REACTIONS (2)
  - CONVULSION [None]
  - LOSS OF CONSCIOUSNESS [None]
